FAERS Safety Report 8287568-2 (Version None)
Quarter: 2012Q2

REPORT INFORMATION
  Report Type: 
  Country: None (occurrence: None)
  Receive Date: 20120416
  Receipt Date: 20120405
  Transmission Date: 20120825
  Serious: Yes (Other)
  Sender: FDA-Public Use
  Company Number: PHHY2012CA029850

PATIENT
  Sex: Female

DRUGS (6)
  1. VITAMIN D [Concomitant]
     Dosage: UNK UKN, UNK
  2. CLOZARIL [Suspect]
     Dosage: UNK UKN, UNK
  3. ATIVAN [Concomitant]
     Dosage: UNK UKN, UNK
  4. LITHIUM [Concomitant]
     Dosage: UNK UKN, UNK
  5. FLORINEF [Concomitant]
     Dosage: UNK UKN, UNK
  6. RISPERDAL [Concomitant]
     Dosage: 3 MG, QD

REACTIONS (3)
  - AGITATION [None]
  - FALL [None]
  - DYSKINESIA [None]
